FAERS Safety Report 4357360-X (Version None)
Quarter: 2004Q2

REPORT INFORMATION
  Report Type: 
  Country: None (occurrence: None)
  Receive Date: 20040513
  Receipt Date: 20040309
  Transmission Date: 20050107
  Serious: Yes (Hospitalization)
  Sender: FDA-Public Use
  Company Number: 200413034GDDC

PATIENT
  Age: 71 Year
  Sex: Female

DRUGS (7)
  1. INDAPAMIDE [Suspect]
     Indication: ESSENTIAL HYPERTENSION
     Route: 048
  2. ROFECOXIB [Suspect]
     Indication: OSTEOPOROSIS
     Dates: end: 20030731
  3. RALOXIFENE HCL [Concomitant]
  4. OMEPRAZOLE [Concomitant]
  5. ATROVENT FORTE [Concomitant]
  6. VENTOLIN [Concomitant]
  7. FLIXOTIDE [Concomitant]

REACTIONS (1)
  - RENAL FAILURE ACUTE [None]
